FAERS Safety Report 20298219 (Version 1)
Quarter: 2022Q1

REPORT INFORMATION
  Report Type: Spontaneous
  Country: US (occurrence: None)
  Receive Date: 20220104
  Receipt Date: 20220104
  Transmission Date: 20220423
  Serious: Yes (Hospitalization)
  Sender: FDA-Public Use
  Company Number: None

PATIENT
  Sex: Female

DRUGS (12)
  1. NORDITROPIN [Suspect]
     Active Substance: SOMATROPIN
     Indication: Hypopituitarism
     Dosage: OTHER QUANTITY : 10MG/1.5ML;?
     Route: 058
     Dates: start: 20210721
  2. AMITRIPTYLIN TAB [Concomitant]
  3. B12-ACTIVE CHW [Concomitant]
  4. BENADRYL CAP [Concomitant]
  5. CLARITIN TAB [Concomitant]
  6. COLACE CAP [Concomitant]
  7. FIORICET CAP [Concomitant]
  8. IRON TAB [Concomitant]
  9. LEXAPRO TAB [Concomitant]
  10. NORVASC TAB [Concomitant]
  11. TIZANIDINE HYDROCHLORIDE [Concomitant]
     Active Substance: TIZANIDINE HYDROCHLORIDE
  12. VOLTAREN [Concomitant]
     Active Substance: DICLOFENAC SODIUM

REACTIONS (2)
  - Hospitalisation [None]
  - Therapy interrupted [None]
